FAERS Safety Report 5859317-6 (Version None)
Quarter: 2008Q3

REPORT INFORMATION
  Report Type: 
  Country: None (occurrence: None)
  Receive Date: 20080827
  Receipt Date: 20080813
  Transmission Date: 20090109
  Serious: Yes (Other)
  Sender: FDA-Public Use
  Company Number: US-ASTRAZENECA-2008UW16801

PATIENT
  Age: 56 Year
  Sex: Female
  Weight: 66.7 kg

DRUGS (2)
  1. PRILOSEC OTC [Suspect]
     Indication: GASTRIC DISORDER
     Dosage: 1 TABLET EVERY DAY
     Route: 048
     Dates: start: 20080708, end: 20080718
  2. PRILOSEC OTC [Suspect]
     Dosage: 1 TABLET EVERY DAY
     Route: 048
     Dates: start: 20080701, end: 20080730

REACTIONS (5)
  - FEELING ABNORMAL [None]
  - HYPERSENSITIVITY [None]
  - HYPOACUSIS [None]
  - LIP SWELLING [None]
  - SWOLLEN TONGUE [None]
